FAERS Safety Report 17703754 (Version 2)
Quarter: 2020Q2

REPORT INFORMATION
  Report Type: Spontaneous
  Country: US (occurrence: US)
  Receive Date: 20200424
  Receipt Date: 20200517
  Transmission Date: 20200714
  Serious: Yes (Death)
  Sender: FDA-Public Use
  Company Number: US-BIOVITRUM-2020US1870

PATIENT
  Age: 23 Year
  Sex: Male
  Weight: 53 kg

DRUGS (6)
  1. PANTAMIDINE [Concomitant]
     Indication: HAEMOPHAGOCYTIC LYMPHOHISTIOCYTOSIS
     Route: 042
  2. DEXAMETHASONE. [Concomitant]
     Active Substance: DEXAMETHASONE
     Indication: HAEMOPHAGOCYTIC LYMPHOHISTIOCYTOSIS
     Route: 042
  3. IVIG [Concomitant]
     Active Substance: HUMAN IMMUNOGLOBULIN G
     Indication: EPSTEIN-BARR VIRUS INFECTION
     Route: 042
  4. RITUXAN [Concomitant]
     Active Substance: RITUXIMAB
     Indication: EPSTEIN-BARR VIRUS INFECTION
     Route: 042
  5. GAMIFANT [Suspect]
     Active Substance: EMAPALUMAB-LZSG
     Indication: HAEMOPHAGOCYTIC LYMPHOHISTIOCYTOSIS
     Dosage: WITH?TITRATION TO 500 MG
     Route: 042
     Dates: start: 20200226, end: 20200324
  6. CEFEPINE [Concomitant]
     Indication: PYREXIA
     Route: 042

REACTIONS (4)
  - Alanine aminotransferase increased [Recovered/Resolved]
  - Off label use [Recovered/Resolved]
  - Aspartate aminotransferase increased [Recovered/Resolved]
  - Disease progression [Fatal]

NARRATIVE: CASE EVENT DATE: 20200229
